FAERS Safety Report 4276420-5 (Version None)
Quarter: 2004Q1

REPORT INFORMATION
  Report Type: 
  Country: None (occurrence: None)
  Receive Date: 20040121
  Receipt Date: 20040121
  Transmission Date: 20041129
  Serious: Yes (Hospitalization)
  Sender: FDA-Public Use
  Company Number: None

PATIENT
  Age: 42 Year
  Sex: Male
  Weight: 79 kg

DRUGS (1)
  1. BACTRIM [Suspect]
     Indication: CELLULITIS
     Dosage: DS BID ORAL
     Route: 048
     Dates: start: 20040116, end: 20040117

REACTIONS (3)
  - RASH ERYTHEMATOUS [None]
  - RASH MACULO-PAPULAR [None]
  - RASH PRURITIC [None]
